FAERS Safety Report 4469351-9 (Version None)
Quarter: 2004Q4

REPORT INFORMATION
  Report Type: 
  Country: None (occurrence: None)
  Receive Date: 20041008
  Receipt Date: 20040204
  Transmission Date: 20050328
  Serious: No
  Sender: FDA-Public Use
  Company Number: US-BRISTOL-MYERS SQUIBB COMPANY-12496774

PATIENT
  Age: 61 Year
  Sex: Female
  Weight: 96 kg

DRUGS (2)
  1. AVAPRO [Suspect]
     Indication: HYPERTENSION
     Route: 048
     Dates: start: 20010907
  2. TYLENOL [Concomitant]

REACTIONS (2)
  - PRURITUS [None]
  - RASH [None]
